FAERS Safety Report 10761047 (Version 1)
Quarter: 2015Q1

REPORT INFORMATION
  Report Type: Spontaneous
  Country: US (occurrence: None)
  Receive Date: 20150203
  Receipt Date: 20150203
  Transmission Date: 20150721
  Serious: Yes (Hospitalization)
  Sender: FDA-Public Use
  Company Number: None

PATIENT
  Age: 65 Year
  Sex: Female
  Weight: 54.43 kg

DRUGS (1)
  1. MINICAP WITH POVIDINE-IODINE [Suspect]
     Active Substance: POVIDONE-IODINE
     Route: 048

REACTIONS (1)
  - Device related infection [None]

NARRATIVE: CASE EVENT DATE: 20150123
